FAERS Safety Report 5142151-2 (Version None)
Quarter: 2006Q4

REPORT INFORMATION
  Report Type: 
  Country: None (occurrence: None)
  Receive Date: 20061102
  Receipt Date: 20061020
  Transmission Date: 20070319
  Serious: Yes (Hospitalization, Other)
  Sender: FDA-Public Use
  Company Number: PHBS2006BR16612

PATIENT
  Age: 58 Year
  Sex: Male
  Weight: 71.5 kg

DRUGS (5)
  1. SLOW-K [Suspect]
     Indication: CROHN'S DISEASE
     Dosage: 1200-1800 MG/DAY
     Route: 048
  2. CLORETO DE POTASSIO SANDOZ [Suspect]
     Indication: CROHN'S DISEASE
  3. PENTASA [Concomitant]
     Indication: CROHN'S DISEASE
     Dosage: 3 G/DAY
     Route: 048
  4. METAMUCIL [Concomitant]
     Dosage: UNK, BID
     Route: 048
  5. AZATHIOPRINE [Concomitant]
     Indication: CROHN'S DISEASE
     Dosage: 50 MG, BID
     Route: 048

REACTIONS (9)
  - BLOOD BILIRUBIN ABNORMAL [None]
  - BLOOD POTASSIUM DECREASED [None]
  - GASTRIC MUCOSAL LESION [None]
  - HEPATIC FUNCTION ABNORMAL [None]
  - HYPOKALAEMIA [None]
  - INTESTINAL OPERATION [None]
  - LARGE INTESTINE PERFORATION [None]
  - PANCREATITIS [None]
  - WHITE BLOOD CELL COUNT DECREASED [None]
